FAERS Safety Report 5284784-9 (Version None)
Quarter: 2007Q1

REPORT INFORMATION
  Report Type: 
  Country: None (occurrence: None)
  Receive Date: 20061229
  Receipt Date: 20060321
  Transmission Date: 20070707
  Serious: Yes (Hospitalization, Other)
  Sender: FDA-Public Use
  Company Number: PHEH2006US03774

PATIENT
  Sex: Female

DRUGS (4)
  1. CLOZARIL [Suspect]
     Indication: SCHIZOPHRENIA
     Dosage: 400-425 MG, QD, ORAL;  600 MG, QD, ORAL
     Route: 048
     Dates: end: 20060201
  2. TRILAFON [Suspect]
     Dates: end: 20060201
  3. HALDOL [Suspect]
  4. SEROQUEL [Suspect]

REACTIONS (2)
  - DYSTONIA [None]
  - NEUROLEPTIC MALIGNANT SYNDROME [None]
